FAERS Safety Report 6510143-4 (Version None)
Quarter: 2009Q4

REPORT INFORMATION
  Report Type: 
  Country: None (occurrence: None)
  Receive Date: 20091222
  Receipt Date: 20091217
  Transmission Date: 20100525
  Serious: Yes (Hospitalization)
  Sender: FDA-Public Use
  Company Number: B0616954A

PATIENT
  Age: 35 Year
  Sex: Male

DRUGS (7)
  1. AMOXICILLIN AND CLAVULANATE POTASSIUM [Suspect]
     Dosage: 3G PER DAY
     Route: 048
     Dates: start: 20091006, end: 20091009
  2. ZELITREX [Suspect]
     Indication: PROPHYLAXIS
     Dosage: 500MG TWICE PER DAY
     Route: 048
     Dates: start: 20091003, end: 20091011
  3. BACTRIM [Suspect]
     Indication: PROPHYLAXIS
     Dosage: 1UNIT PER DAY
     Route: 048
     Dates: start: 20091003, end: 20091009
  4. OFLOCET [Concomitant]
     Dosage: 500MG TWICE PER DAY
     Route: 048
     Dates: start: 20091006, end: 20091009
  5. LEDERFOLINE [Concomitant]
     Indication: DRUG USE FOR UNKNOWN INDICATION
     Dosage: 25MG TWO TIMES PER WEEK
     Route: 048
     Dates: start: 20091003
  6. CLADRIBINE [Concomitant]
     Dosage: .14MGK PER DAY
     Route: 058
     Dates: start: 20090929, end: 20091003
  7. NEULASTA [Concomitant]
     Indication: NEUTROPENIA
     Route: 065
     Dates: start: 20091004, end: 20091004

REACTIONS (4)
  - EYELID OEDEMA [None]
  - LARYNGEAL OEDEMA [None]
  - PYREXIA [None]
  - RASH MACULO-PAPULAR [None]
